FAERS Safety Report 6348588-8 (Version None)
Quarter: 2009Q3

REPORT INFORMATION
  Report Type: 
  Country: None (occurrence: None)
  Receive Date: 20090911
  Receipt Date: 20090907
  Transmission Date: 20100115
  Serious: Yes (Hospitalization)
  Sender: FDA-Public Use
  Company Number: FR-ROCHE-654716

PATIENT
  Sex: Female

DRUGS (3)
  1. ROCEPHIN [Suspect]
     Indication: PSEUDOMEMBRANOUS COLITIS
     Route: 042
     Dates: start: 20090623, end: 20090627
  2. INEXIUM [Concomitant]
     Dosage: THERAPY DURATION REPORTED AS SEVERAL MONTHS.
  3. NOOTROPYL [Concomitant]
     Dosage: THERAPY DURATION REPORTED AS SEVERAL MONTHS.

REACTIONS (1)
  - HEPATITIS [None]
